FAERS Safety Report 15074826 (Version 1)
Quarter: 2018Q2

REPORT INFORMATION
  Report Type: Report from Study
  Country: US (occurrence: US)
  Receive Date: 20180627
  Receipt Date: 20180627
  Transmission Date: 20180711
  Serious: Yes (Other)
  Sender: FDA-Public Use
  Company Number: US-SAOL THERAPEUTICS-2017SAO01439

PATIENT
  Age: 64 Year
  Sex: Male

DRUGS (12)
  1. BACLOFEN. [Suspect]
     Active Substance: BACLOFEN
     Dosage: 90.24 ?G, \DAY
     Route: 037
     Dates: start: 20160107
  2. BACLOFEN. [Suspect]
     Active Substance: BACLOFEN
     Dosage: MAX DOSE 176.62 ?G, \DAY
     Dates: start: 20160107, end: 20160701
  3. BACLOFEN. [Suspect]
     Active Substance: BACLOFEN
     Dosage: MAX DOSE 184.38 ?G, \DAY
     Route: 037
     Dates: start: 20160701
  4. CLONIDINE. [Suspect]
     Active Substance: CLONIDINE
     Dosage: MAX DOSE 176.62 ?G, \DAY
     Route: 037
     Dates: start: 20160107, end: 20160701
  5. CLONIDINE. [Suspect]
     Active Substance: CLONIDINE
     Dosage: 90.24 ?G, \DAY
     Route: 037
     Dates: start: 20160107
  6. CLONIDINE. [Suspect]
     Active Substance: CLONIDINE
     Dosage: MAX DOSE 184.38 ?G, \DAY
     Route: 037
     Dates: start: 20160701
  7. BUPIVACAINE. [Suspect]
     Active Substance: BUPIVACAINE
     Dosage: 6.768 MG, \DAY
     Route: 037
     Dates: start: 20160107
  8. BUPIVACAINE. [Suspect]
     Active Substance: BUPIVACAINE
     Dosage: MAX DOSE 13.246 MG, \DAY
     Route: 037
     Dates: start: 20160107, end: 20160701
  9. BUPIVACAINE. [Suspect]
     Active Substance: BUPIVACAINE
     Dosage: MAX DOSE 13.829 MG, \DAY
     Route: 037
     Dates: start: 20160701
  10. DILAUDID [Suspect]
     Active Substance: HYDROMORPHONE HYDROCHLORIDE
     Dosage: 0.451 MG, \DAY
     Dates: start: 20160107
  11. DILAUDID [Suspect]
     Active Substance: HYDROMORPHONE HYDROCHLORIDE
     Dosage: MAX DOSE 0.921 MG, \DAY
     Route: 037
     Dates: start: 20160701
  12. DILAUDID [Suspect]
     Active Substance: HYDROMORPHONE HYDROCHLORIDE
     Dosage: MAX DOSE 0.883 MG, \DAY
     Route: 037
     Dates: start: 20160107, end: 20160701

REACTIONS (4)
  - Drug withdrawal syndrome [Recovered/Resolved]
  - Device malfunction [Recovered/Resolved]
  - Depression [Recovered/Resolved]
  - Hypoaesthesia [Recovered/Resolved]

NARRATIVE: CASE EVENT DATE: 20160514
